FAERS Safety Report 5195871-8 (Version None)
Quarter: 2007Q1

REPORT INFORMATION
  Report Type: 
  Country: None (occurrence: None)
  Receive Date: 20070102
  Receipt Date: 20061229
  Transmission Date: 20070707
  Serious: Yes (Disabling)
  Sender: FDA-Public Use
  Company Number: JP-JPN-A200602539

PATIENT
  Age: 6 Month
  Sex: Male

DRUGS (8)
  1. FLOLAN [Suspect]
     Indication: PULMONARY HYPERTENSION
     Dosage: .5NGKM PER DAY
     Route: 042
     Dates: start: 20060119
  2. DOBUTAMINE HCL [Concomitant]
     Route: 042
  3. MILRINONE [Concomitant]
     Route: 042
  4. BERAPROST [Concomitant]
     Route: 048
  5. FUROSEMIDE [Concomitant]
     Route: 048
  6. SPIRONOLACTONE [Concomitant]
     Route: 048
  7. BERAPROST SODIUM [Concomitant]
     Route: 048
  8. DOBUTREX [Concomitant]
     Route: 042

REACTIONS (5)
  - DYSPNOEA [None]
  - PULMONARY CONGESTION [None]
  - PULMONARY HYPERTENSION [None]
  - PULMONARY OEDEMA [None]
  - PULMONARY VENO-OCCLUSIVE DISEASE [None]
